FAERS Safety Report 20163895 (Version 1)
Quarter: 2021Q4

REPORT INFORMATION
  Report Type: Spontaneous
  Country: US (occurrence: US)
  Receive Date: 20211209
  Receipt Date: 20211209
  Transmission Date: 20220303
  Serious: No
  Sender: FDA-Public Use
  Company Number: US-SA-SAC20211207000668

PATIENT
  Sex: Male

DRUGS (9)
  1. TAXOTERE [Suspect]
     Active Substance: DOCETAXEL
     Dosage: 60 MG/M2
     Dates: start: 20210702, end: 20210702
  2. TAXOTERE [Suspect]
     Active Substance: DOCETAXEL
     Dosage: 60 MG/M2
     Dates: start: 20210729, end: 20210729
  3. TAXOTERE [Suspect]
     Active Substance: DOCETAXEL
     Dosage: 75 MG/M2
     Dates: start: 20210818, end: 20210818
  4. TAXOTERE [Suspect]
     Active Substance: DOCETAXEL
     Dosage: 75 MG/M2
     Dates: start: 20210910, end: 20210910
  5. CABAZITAXEL [Suspect]
     Active Substance: CABAZITAXEL
     Dosage: UNK (COMPLETING 6 CYCLES)
     Dates: start: 20200909, end: 20201230
  6. XTANDI [Suspect]
     Active Substance: ENZALUTAMIDE
     Dosage: UNK
  7. ENZALUTAMIDE [Concomitant]
     Active Substance: ENZALUTAMIDE
     Dosage: UNK
     Dates: start: 2018
  8. FIRMAGON [Concomitant]
     Active Substance: DEGARELIX ACETATE
     Dosage: UNK
     Dates: start: 2018
  9. METFORMIN [Concomitant]
     Active Substance: METFORMIN HYDROCHLORIDE
     Dosage: UNK
     Dates: start: 2018

REACTIONS (1)
  - Drug ineffective [Unknown]
